FAERS Safety Report 4699701-X (Version None)
Quarter: 2005Q2

REPORT INFORMATION
  Report Type: 
  Country: None (occurrence: None)
  Receive Date: 20050623
  Receipt Date: 20050609
  Transmission Date: 20051028
  Serious: Yes (Hospitalization)
  Sender: FDA-Public Use
  Company Number: CERZ-10917

PATIENT
  Age: 17 Month
  Sex: Male
  Weight: 8 kg

DRUGS (13)
  1. CEREZYME [Suspect]
     Indication: GAUCHER'S DISEASE
     Dosage: 600 UNITS Q2WKS IV
     Route: 042
     Dates: start: 20030715
  2. VALPROATE SODIUM [Concomitant]
  3. CLARITHROMYCIN [Concomitant]
  4. FUROSEMIDE [Concomitant]
  5. SPIRONOLACTONE [Concomitant]
  6. CYPROHEPTADINE HYDROCHLORIDE [Concomitant]
  7. PHENOBARBITAL [Concomitant]
  8. THEOPHYLLINE [Concomitant]
  9. TPN [Concomitant]
  10. TRICHLORETHYL PHOSPHATE [Concomitant]
  11. DANTROLENE SODUIM [Concomitant]
  12. DIAZEPAM [Concomitant]
  13. PIRACETAM [Concomitant]

REACTIONS (4)
  - CONDITION AGGRAVATED [None]
  - CONJUNCTIVITIS [None]
  - HYPERTONIA [None]
  - PNEUMONIA [None]
